FAERS Safety Report 12657494 (Version 3)
Quarter: 2018Q2

REPORT INFORMATION
  Report Type: Spontaneous
  Country: FR (occurrence: FR)
  Receive Date: 20160816
  Receipt Date: 20180526
  Transmission Date: 20180711
  Serious: Yes (Other)
  Sender: FDA-Public Use
  Company Number: FR-AMGEN-FRASP2016105159

PATIENT
  Age: 24 Year
  Sex: Male

DRUGS (3)
  1. MOPRAL [Concomitant]
     Active Substance: OMEPRAZOLE
     Dosage: UNK
  2. APRANAX [Concomitant]
     Active Substance: NAPROXEN
     Dosage: UNK
  3. ENBREL [Suspect]
     Active Substance: ETANERCEPT
     Indication: ANKYLOSING SPONDYLITIS
     Dosage: 50 MG, QWK
     Route: 058
     Dates: start: 201507, end: 20160725

REACTIONS (1)
  - Hepatocellular injury [Not Recovered/Not Resolved]

NARRATIVE: CASE EVENT DATE: 20160725
